FAERS Safety Report 10033933 (Version 1)
Quarter: 2014Q1

REPORT INFORMATION
  Report Type: Spontaneous
  Country: CR (occurrence: CR)
  Receive Date: 20140325
  Receipt Date: 20140325
  Transmission Date: 20141002
  Serious: Yes (Hospitalization)
  Sender: FDA-Public Use
  Company Number: CR-AMGEN-CRISP2014020947

PATIENT
  Age: 34 Year
  Sex: Female
  Weight: 94 kg

DRUGS (4)
  1. ENBREL [Suspect]
     Indication: RHEUMATOID ARTHRITIS
     Dosage: 50 MG, WEEKLY
     Route: 058
     Dates: start: 20130903
  2. METHOTREXATE [Concomitant]
     Dosage: UNK
     Dates: start: 20070319
  3. PLAQUINOL [Concomitant]
     Dosage: UNK
     Route: 058
     Dates: start: 20080319
  4. CIPROFLOXACIN [Concomitant]
     Dosage: UNK
     Dates: start: 20110319

REACTIONS (4)
  - Papilloma [Unknown]
  - Myalgia [Unknown]
  - Arthralgia [Unknown]
  - Bedridden [Unknown]
